FAERS Safety Report 24241581 (Version 1)
Quarter: 2024Q3

REPORT INFORMATION
  Report Type: Report from Study
  Country: BG (occurrence: BG)
  Receive Date: 20240823
  Receipt Date: 20240823
  Transmission Date: 20241017
  Serious: Yes (Hospitalization)
  Sender: ABBVIE
  Company Number: BG-ABBVIE-5887494

PATIENT
  Age: 72 Year
  Sex: Female

DRUGS (1)
  1. HUMIRA [Suspect]
     Active Substance: ADALIMUMAB
     Indication: Rheumatoid arthritis
     Dosage: 40 MG/ 0.4 ML, FREQUENCY TEXT: EVERY 14 DAYS
     Route: 058
     Dates: start: 202309

REACTIONS (2)
  - Laboratory test abnormal [Unknown]
  - Tumour marker increased [Unknown]
